FAERS Safety Report 4846937-0 (Version None)
Quarter: 2005Q4

REPORT INFORMATION
  Report Type: 
  Country: None (occurrence: None)
  Receive Date: 20051130
  Receipt Date: 20051118
  Transmission Date: 20060501
  Serious: Yes (Hospitalization)
  Sender: FDA-Public Use
  Company Number: HQWYE640418NOV05

PATIENT
  Age: 75 Year
  Sex: Male

DRUGS (10)
  1. CORDARONE [Suspect]
     Indication: ATRIAL FIBRILLATION
     Dosage: 2 UNIT 1X PER 1 DAY
     Route: 048
  2. DIGOXIN [Concomitant]
  3. RAMIPRIL [Concomitant]
  4. METFORMIN HCL [Concomitant]
  5. ATORVASTATIN CALCIUM [Concomitant]
  6. BISOPROLOL (BISOPROLOL) [Concomitant]
  7. OMEPRAZOLE [Concomitant]
  8. GLICLAZIDE (GLICLAZIDE) [Concomitant]
  9. ADCAL D3 (CALCIUM CARBONATE/COLECALCIFEROL) [Concomitant]
  10. WARFARIN (WARFARIN) [Concomitant]

REACTIONS (5)
  - ANAEMIA [None]
  - CARDIOACTIVE DRUG LEVEL DECREASED [None]
  - HYPERTHYROIDISM [None]
  - HYPOGLYCAEMIA [None]
  - SMALL INTESTINE CARCINOMA [None]
